FAERS Safety Report 21172588 (Version 1)
Quarter: 2022Q3

REPORT INFORMATION
  Report Type: Spontaneous
  Country: US (occurrence: US)
  Receive Date: 20220804
  Receipt Date: 20220804
  Transmission Date: 20221027
  Serious: Yes (Other)
  Sender: FDA-Public Use
  Company Number: US-PFIZER INC-PV202200035228

PATIENT
  Age: 69 Year
  Sex: Female

DRUGS (37)
  1. PROTONIX [Suspect]
     Active Substance: PANTOPRAZOLE SODIUM
     Indication: Gastrooesophageal reflux disease
     Dosage: 40 MG, 1X/DAY
     Dates: start: 2017
  2. NEXIUM [Suspect]
     Active Substance: ESOMEPRAZOLE MAGNESIUM
     Indication: Gastrooesophageal reflux disease
     Dosage: 40 MG, 1X/DAY
     Dates: start: 2006, end: 2017
  3. ESOMEPRAZOLE [Suspect]
     Active Substance: ESOMEPRAZOLE
     Indication: Gastrooesophageal reflux disease
     Dosage: 40 MG, 1X/DAY
     Dates: start: 2015
  4. OMEPRAZOLE [Suspect]
     Active Substance: OMEPRAZOLE
     Indication: Gastrooesophageal reflux disease
     Dosage: 40 MG, 1X/DAY
     Dates: start: 2016
  5. PANTOPRAZOLE [Suspect]
     Active Substance: PANTOPRAZOLE
     Indication: Gastrooesophageal reflux disease
     Dosage: 40 MG, 1X/DAY
     Dates: start: 2017
  6. IBUPROFEN [Concomitant]
     Active Substance: IBUPROFEN
     Indication: Analgesic therapy
     Dosage: UNK
     Dates: start: 2019
  7. TYLENOL [Concomitant]
     Active Substance: ACETAMINOPHEN
     Indication: Analgesic therapy
     Dosage: UNK
     Dates: start: 2016
  8. ASPIRIN [Concomitant]
     Active Substance: ASPIRIN
     Indication: Anticoagulant therapy
     Dosage: UNK
     Dates: start: 2016
  9. PEPCID AC OTC [Concomitant]
     Dosage: UNK
     Dates: start: 2013
  10. TUMS [Concomitant]
     Active Substance: CALCIUM CARBONATE
     Indication: Antacid therapy
     Dosage: UNK (DOSAGE AS RECOMMENDED)
     Dates: start: 2007, end: 2008
  11. CELEBREX [Concomitant]
     Active Substance: CELECOXIB
     Indication: Analgesic therapy
     Dosage: UNK
     Dates: start: 2011
  12. VOLTAREN [Concomitant]
     Active Substance: DICLOFENAC SODIUM
     Indication: Analgesic therapy
     Dosage: UNK
     Dates: start: 2010, end: 2011
  13. KETOROLAC [Concomitant]
     Active Substance: KETOROLAC TROMETHAMINE
     Indication: Analgesic therapy
     Dosage: UNK
     Dates: start: 2007, end: 2014
  14. OXAPROZIN [Concomitant]
     Active Substance: OXAPROZIN
     Indication: Analgesic therapy
     Dosage: UNK
     Dates: start: 2008, end: 2009
  15. TRAMADOL [Concomitant]
     Active Substance: TRAMADOL
     Indication: Analgesic therapy
     Dosage: UNK
     Dates: start: 2011, end: 2016
  16. MELOXICAM [Concomitant]
     Active Substance: MELOXICAM
     Indication: Osteoarthritis
     Dosage: UNK
     Dates: start: 2011, end: 2013
  17. ACYCLOVIR [Concomitant]
     Active Substance: ACYCLOVIR
     Indication: Viral infection
     Dosage: UNK
     Dates: start: 2005, end: 2017
  18. ZOVIRAX [Concomitant]
     Active Substance: ACYCLOVIR
     Indication: Viral infection
     Dosage: UNK
     Dates: start: 2017
  19. AMOXICILLIN [Concomitant]
     Active Substance: AMOXICILLIN
     Indication: Infection
     Dosage: UNK
     Dates: start: 2007, end: 2009
  20. CIPROFLOXACIN [Concomitant]
     Active Substance: CIPROFLOXACIN
     Indication: Infection
     Dosage: UNK
     Dates: start: 2007, end: 2013
  21. AZITHROMYCIN [Concomitant]
     Active Substance: AZITHROMYCIN
     Indication: Infection
     Dosage: UNK
     Dates: start: 2010, end: 2016
  22. CIPRO [Concomitant]
     Active Substance: CIPROFLOXACIN HYDROCHLORIDE
     Indication: Infection
     Dosage: UNK
     Dates: start: 2012
  23. DOXYCYCLINE [Concomitant]
     Active Substance: DOXYCYCLINE
     Indication: Infection
     Dosage: UNK
     Dates: start: 2006
  24. ERYTHROMYCIN [Concomitant]
     Active Substance: ERYTHROMYCIN
     Indication: Infection
     Dosage: UNK
     Dates: start: 2007
  25. VIGAMOX [Concomitant]
     Active Substance: MOXIFLOXACIN HYDROCHLORIDE
     Indication: Infection
     Dosage: UNK
     Dates: start: 2014
  26. ITRACONAZOLE [Concomitant]
     Active Substance: ITRACONAZOLE
     Indication: Fungal infection
     Dosage: UNK
     Dates: start: 2013
  27. LOSARTAN [Concomitant]
     Active Substance: LOSARTAN
     Indication: Hypertension
     Dosage: UNK
     Dates: start: 2010, end: 2017
  28. COZAAR [Concomitant]
     Active Substance: LOSARTAN POTASSIUM
     Indication: Hypertension
     Dosage: UNK
     Dates: start: 2007, end: 2010
  29. HYDROCHLOROTHIAZIDE [Concomitant]
     Active Substance: HYDROCHLOROTHIAZIDE
     Indication: Hypertension
     Dosage: UNK
     Dates: start: 2007, end: 2016
  30. SPIRONOLACTONE [Concomitant]
     Active Substance: SPIRONOLACTONE
     Indication: Hypertension
     Dosage: UNK
     Dates: start: 2015, end: 2016
  31. HYDRALAZINE [Concomitant]
     Active Substance: HYDRALAZINE HYDROCHLORIDE
     Indication: Hypertension
     Dosage: UNK
     Dates: start: 2017
  32. FUROSEMIDE [Concomitant]
     Active Substance: FUROSEMIDE
     Indication: Oedema
     Dosage: UNK
     Dates: start: 2017
  33. LASIX [Concomitant]
     Active Substance: FUROSEMIDE
     Indication: Oedema
     Dosage: UNK
     Dates: start: 2017
  34. PRAVASTATIN [Concomitant]
     Active Substance: PRAVASTATIN
     Indication: Blood cholesterol increased
     Dosage: UNK
     Dates: start: 2008
  35. CRESTOR [Concomitant]
     Active Substance: ROSUVASTATIN CALCIUM
     Indication: Blood cholesterol increased
     Dosage: UNK
     Dates: start: 2010
  36. SIMVASTATIN [Concomitant]
     Active Substance: SIMVASTATIN
     Indication: Blood cholesterol increased
     Dosage: UNK
     Dates: start: 2011
  37. AMITRIPTYLINE [Concomitant]
     Active Substance: AMITRIPTYLINE
     Indication: Antidepressant therapy
     Dosage: UNK
     Dates: start: 2012

REACTIONS (3)
  - Chronic kidney disease [Not Recovered/Not Resolved]
  - Acute kidney injury [Not Recovered/Not Resolved]
  - Gastrooesophageal reflux disease [Not Recovered/Not Resolved]

NARRATIVE: CASE EVENT DATE: 20170101
